FAERS Safety Report 11067647 (Version 1)
Quarter: 2015Q2

REPORT INFORMATION
  Report Type: Spontaneous
  Country: US (occurrence: None)
  Receive Date: 20150424
  Receipt Date: 20150424
  Transmission Date: 20150821
  Serious: Yes (Disabling)
  Sender: FDA-Public Use
  Company Number: None

PATIENT
  Age: 77 Year
  Sex: Male
  Weight: 117.94 kg

DRUGS (6)
  1. LISINOPRIL. [Concomitant]
     Active Substance: LISINOPRIL
  2. DOXAZOSIN [Suspect]
     Active Substance: DOXAZOSIN\DOXAZOSIN MESYLATE
     Indication: PROSTATIC DISORDER
     Dosage: 1 PILL PER DAY ONE TABLET DAILY ORALLY (BY MOUTH)
     Route: 048
     Dates: start: 201011, end: 20130501
  3. CARVEDELOL [Concomitant]
  4. TRIAMTERENE. [Concomitant]
     Active Substance: TRIAMTERENE
  5. DOXAZOSIN [Suspect]
     Active Substance: DOXAZOSIN\DOXAZOSIN MESYLATE
     Indication: HYPERTENSION
     Dosage: 1 PILL PER DAY ONE TABLET DAILY ORALLY (BY MOUTH)
     Route: 048
     Dates: start: 201011, end: 20130501
  6. ASPIRIN. [Concomitant]
     Active Substance: ASPIRIN

REACTIONS (4)
  - Gait disturbance [None]
  - Dysstasia [None]
  - Erythema [None]
  - Peripheral swelling [None]

NARRATIVE: CASE EVENT DATE: 201403
